FAERS Safety Report 17778205 (Version 1)
Quarter: 2020Q2

REPORT INFORMATION
  Report Type: Spontaneous
  Country: DE (occurrence: DE)
  Receive Date: 20200513
  Receipt Date: 20200513
  Transmission Date: 20200714
  Serious: Yes (Hospitalization)
  Sender: FDA-Public Use
  Company Number: DE-GALDERMA-DE2020022370

PATIENT
  Age: 57 Year
  Sex: Female

DRUGS (2)
  1. CEFUROXIM [Concomitant]
     Active Substance: CEFUROXIME
     Indication: PRODUCT USED FOR UNKNOWN INDICATION
     Route: 065
     Dates: start: 20200116
  2. METRONIDAZOLE. [Suspect]
     Active Substance: METRONIDAZOLE
     Indication: PRODUCT USED FOR UNKNOWN INDICATION
     Route: 065
     Dates: start: 20200116

REACTIONS (5)
  - Restlessness [Unknown]
  - Paresis [Unknown]
  - Musculoskeletal pain [Unknown]
  - Tremor [Unknown]
  - Paraesthesia [Unknown]
